FAERS Safety Report 7015155-2 (Version None)
Quarter: 2010Q3

REPORT INFORMATION
  Report Type: 
  Country: None (occurrence: None)
  Receive Date: 20100927
  Receipt Date: 20100517
  Transmission Date: 20110219
  Serious: No
  Sender: FDA-Public Use
  Company Number: US-ASTRAZENECA-2010SE22499

PATIENT
  Age: 67 Year
  Sex: Female
  Weight: 97.1 kg

DRUGS (2)
  1. ARIMIDEX [Suspect]
     Indication: BREAST CANCER
     Route: 048
     Dates: start: 20081101, end: 20100320
  2. NSAID PATCH [Concomitant]

REACTIONS (9)
  - ARTHRALGIA [None]
  - ATROPHIC VULVOVAGINITIS [None]
  - CARPAL TUNNEL SYNDROME [None]
  - FATIGUE [None]
  - JOINT LOCK [None]
  - JOINT SWELLING [None]
  - MUSCLE SPASMS [None]
  - VASCULAR RUPTURE [None]
  - WEIGHT INCREASED [None]
